FAERS Safety Report 25200523 (Version 1)
Quarter: 2025Q2

REPORT INFORMATION
  Report Type: Spontaneous
  Country: US (occurrence: US)
  Receive Date: 20250415
  Receipt Date: 20250415
  Transmission Date: 20250716
  Serious: Yes (Death)
  Sender: Unknown Manufacturer
  Company Number: US-MTPC-MTPA2025-0006920

PATIENT
  Sex: Male

DRUGS (1)
  1. RADICAVA [Suspect]
     Active Substance: EDARAVONE
     Indication: Product used for unknown indication
     Route: 042

REACTIONS (3)
  - Death [Fatal]
  - Muscular weakness [Unknown]
  - Aphasia [Unknown]
